FAERS Safety Report 20335200 (Version 1)
Quarter: 2022Q1

REPORT INFORMATION
  Report Type: Report from Study
  Country: CA (occurrence: CA)
  Receive Date: 20220114
  Receipt Date: 20220114
  Transmission Date: 20220423
  Serious: Yes (Death, Other)
  Sender: FDA-Public Use
  Company Number: CA-BAYER-2022A005144

PATIENT

DRUGS (1)
  1. EYLEA [Suspect]
     Active Substance: AFLIBERCEPT
     Indication: Neovascular age-related macular degeneration
     Dosage: 40MG/ML, AFFECTED EYE, DOSE, FREQUENCY OR TOTAL NUMBER OF INJECTIONS WAS NOT REPORTED
     Dates: start: 20171115

REACTIONS (1)
  - Death [Fatal]

NARRATIVE: CASE EVENT DATE: 20210201
